FAERS Safety Report 13529657 (Version 1)
Quarter: 2017Q2

REPORT INFORMATION
  Report Type: Spontaneous
  Country: US (occurrence: US)
  Receive Date: 20170509
  Receipt Date: 20170509
  Transmission Date: 20170830
  Serious: No
  Sender: FDA-Public Use
  Company Number: US-ROCHE-GNE322200

PATIENT
  Age: 84 Year
  Sex: Female
  Weight: 74.46 kg

DRUGS (1)
  1. XOLAIR [Suspect]
     Active Substance: OMALIZUMAB
     Indication: PRODUCT USED FOR UNKNOWN INDICATION
     Dosage: 300 MG, Q4W
     Route: 058
     Dates: start: 20110627, end: 20110727

REACTIONS (5)
  - Lethargy [None]
  - Dizziness [None]
  - Feeling abnormal [Recovered/Resolved]
  - Urticaria [None]
  - Somnolence [None]

NARRATIVE: CASE EVENT DATE: 20110628
